FAERS Safety Report 4451504-7 (Version None)
Quarter: 2004Q3

REPORT INFORMATION
  Report Type: 
  Country: None (occurrence: None)
  Receive Date: 20040915
  Receipt Date: 20040907
  Transmission Date: 20050211
  Serious: Yes (Hospitalization)
  Sender: FDA-Public Use
  Company Number: FR9199310OCT2002

PATIENT
  Age: 53 Year
  Sex: Male

DRUGS (4)
  1. SIROLIMUS (SIROLIMUS, SOLUTION, 0) [Suspect]
     Indication: RENAL TRANSPLANT
     Dosage: 4 MG 1X PER 1 DAY ORAL
     Route: 048
     Dates: start: 20020723
  2. CELLCEPT [Concomitant]
  3. CELLCEPT [Concomitant]
  4. PREDNISONE [Concomitant]

REACTIONS (3)
  - DEEP VEIN THROMBOSIS [None]
  - ELECTROCARDIOGRAM ABNORMAL [None]
  - PULMONARY EMBOLISM [None]
